FAERS Safety Report 5161989-9 (Version None)
Quarter: 2006Q4

REPORT INFORMATION
  Report Type: 
  Country: None (occurrence: None)
  Receive Date: 20061130
  Receipt Date: 20061120
  Transmission Date: 20070319
  Serious: Yes (Other)
  Sender: FDA-Public Use
  Company Number: US-SANOFI-SYNTHELABO-A03200606947

PATIENT
  Sex: Female
  Weight: 85.7 kg

DRUGS (15)
  1. AMITRIPTYLINE HCL [Suspect]
     Indication: DRUG USE FOR UNKNOWN INDICATION
     Dosage: UNK
     Route: 048
     Dates: end: 20060101
  2. FISH OILS [Concomitant]
     Dosage: UNK
     Route: 048
  3. LYRICA [Concomitant]
     Dosage: UNK
     Route: 048
  4. ASPIRIN [Concomitant]
     Dosage: UNK
     Route: 048
  5. ZYRTEC [Concomitant]
     Dosage: UNK
     Route: 048
  6. SINGULAIR [Concomitant]
     Dosage: UNK
     Route: 048
  7. CALCIUM [Concomitant]
     Dosage: UNK
     Route: 048
  8. VITAMIN CAP [Concomitant]
     Dosage: UNK
     Route: 048
  9. ZETIA [Concomitant]
     Dosage: UNK
     Route: 048
  10. CRESTOR [Concomitant]
     Dosage: UNK
     Route: 048
  11. POTASSIUM ACETATE [Concomitant]
     Dosage: UNK
     Route: 048
  12. LASIX [Concomitant]
     Dosage: UNK
     Route: 048
  13. AMBIEN [Suspect]
     Indication: INSOMNIA
     Route: 048
     Dates: end: 20060101
  14. AMBIEN [Suspect]
     Route: 048
     Dates: start: 20060101, end: 20061101
  15. AMBIEN [Suspect]
     Dosage: UNK
     Route: 048

REACTIONS (11)
  - DRUG INEFFECTIVE [None]
  - FALL [None]
  - HAEMATOMA [None]
  - HALLUCINATION, VISUAL [None]
  - HIP FRACTURE [None]
  - MONOPLEGIA [None]
  - PELVIC FRACTURE [None]
  - PULMONARY OEDEMA [None]
  - SENSORY LOSS [None]
  - SPINAL FRACTURE [None]
  - THROMBOSIS [None]
